FAERS Safety Report 22074265 (Version 2)
Quarter: 2023Q1

REPORT INFORMATION
  Report Type: Spontaneous
  Country: JP (occurrence: JP)
  Receive Date: 20230308
  Receipt Date: 20230310
  Transmission Date: 20230418
  Serious: Yes (Life-Threatening, Other)
  Sender: FDA-Public Use
  Company Number: JP-MLMSERVICE-20230228-4133655-1

PATIENT
  Age: 62 Year
  Sex: Female

DRUGS (9)
  1. DOXORUBICIN HYDROCHLORIDE [Suspect]
     Active Substance: DOXORUBICIN HYDROCHLORIDE
     Indication: Adult T-cell lymphoma/leukaemia
     Dosage: UNK
  2. ETOPOSIDE [Suspect]
     Active Substance: ETOPOSIDE
     Indication: Adult T-cell lymphoma/leukaemia
     Dosage: UNK
  3. CYCLOPHOSPHAMIDE [Concomitant]
     Active Substance: CYCLOPHOSPHAMIDE
     Indication: Adult T-cell lymphoma/leukaemia
     Dosage: UNK
  4. VINDESINE [Concomitant]
     Active Substance: VINDESINE
     Indication: Adult T-cell lymphoma/leukaemia
     Dosage: UNK
  5. MOGAMULIZUMAB [Concomitant]
     Active Substance: MOGAMULIZUMAB
     Indication: Adult T-cell lymphoma/leukaemia
     Dosage: UNK
  6. VINCRISTINE [Concomitant]
     Active Substance: VINCRISTINE
     Indication: Adult T-cell lymphoma/leukaemia
     Dosage: UNK
  7. RANIMUSTINE [Concomitant]
     Active Substance: RANIMUSTINE
     Indication: Adult T-cell lymphoma/leukaemia
     Dosage: UNK
  8. CARBOPLATIN [Concomitant]
     Active Substance: CARBOPLATIN
     Indication: Adult T-cell lymphoma/leukaemia
     Dosage: UNK
  9. PREDNISONE [Concomitant]
     Active Substance: PREDNISONE
     Indication: Adult T-cell lymphoma/leukaemia
     Dosage: UNK

REACTIONS (3)
  - Second primary malignancy [Unknown]
  - Myeloproliferative neoplasm [Unknown]
  - KMT2A gene mutation [Unknown]
